FAERS Safety Report 4946362-8 (Version None)
Quarter: 2006Q1

REPORT INFORMATION
  Report Type: 
  Country: None (occurrence: None)
  Receive Date: 20060317
  Receipt Date: 20060308
  Transmission Date: 20060701
  Serious: Yes (Other)
  Sender: FDA-Public Use
  Company Number: US-JNJFOC-20050804993

PATIENT
  Sex: Female
  Weight: 69.51 kg

DRUGS (1)
  1. ORTHO EVRA [Suspect]
     Indication: CONTRACEPTION
     Route: 062

REACTIONS (8)
  - ANAEMIA [None]
  - DRUG EXPOSURE DURING PREGNANCY [None]
  - HELLP SYNDROME [None]
  - STAPHYLOCOCCAL INFECTION [None]
  - TOOTH ABSCESS [None]
  - UNINTENDED PREGNANCY [None]
  - URINARY TRACT INFECTION [None]
  - WOLFF-PARKINSON-WHITE SYNDROME [None]
